FAERS Safety Report 5742810-4 (Version None)
Quarter: 2008Q2

REPORT INFORMATION
  Report Type: 
  Country: None (occurrence: None)
  Receive Date: 20080519
  Receipt Date: 20080507
  Transmission Date: 20081010
  Serious: Yes (Death)
  Sender: FDA-Public Use
  Company Number: LB-MERCK-0805USA03709

PATIENT

DRUGS (4)
  1. CANCIDAS [Suspect]
     Indication: ANTIFUNGAL PROPHYLAXIS
     Route: 042
  2. CANCIDAS [Suspect]
     Route: 042
  3. CANCIDAS [Suspect]
     Route: 042
  4. CANCIDAS [Suspect]
     Route: 042

REACTIONS (2)
  - COLITIS [None]
  - GRAFT VERSUS HOST DISEASE [None]
